FAERS Safety Report 8484315-6 (Version None)
Quarter: 2012Q3

REPORT INFORMATION
  Report Type: 
  Country: None (occurrence: None)
  Receive Date: 20120703
  Receipt Date: 20120625
  Transmission Date: 20120928
  Serious: Yes (Other)
  Sender: FDA-Public Use
  Company Number: PHHY2012BR043025

PATIENT
  Age: 52 Year
  Sex: Female

DRUGS (5)
  1. DIPYRONE INJ [Suspect]
     Indication: RHEUMATOID ARTHRITIS
     Dosage: UNK UKN, UNK
  2. FORMOTEROL FUMARATE [Suspect]
     Indication: DYSPNOEA
     Dosage: 2 DF, (ONE APPLICATION IN THE MORNING AND ANOTHER AT NIGHT)
  3. CORTICOSTEROID NOS [Concomitant]
     Indication: RHEUMATOID ARTHRITIS
     Dosage: UNK UKN, UNK
  4. NEXIUM [Concomitant]
     Indication: OESOPHAGEAL DISORDER
     Dosage: 1 TABLET IN THE MORNING
  5. FORMOTEROL FUMARATE [Suspect]
     Dosage: UNK UKN, UNK (AT NIGHT)
     Dates: start: 20120516

REACTIONS (4)
  - CHEST DISCOMFORT [None]
  - INFLUENZA [None]
  - PNEUMONIA [None]
  - BRONCHITIS [None]
